FAERS Safety Report 10377088 (Version 2)
Quarter: 2014Q3

REPORT INFORMATION
  Report Type: Spontaneous
  Country: US (occurrence: US)
  Receive Date: 20140812
  Receipt Date: 20140825
  Transmission Date: 20150326
  Serious: Yes (Death, Hospitalization)
  Sender: FDA-Public Use
  Company Number: US-UNITED THERAPEUTICS-UNT-2014-005336

PATIENT
  Age: 67 Year
  Sex: Male
  Weight: 84.35 kg

DRUGS (1)
  1. REMODULIN [Suspect]
     Active Substance: TREPROSTINIL
     Indication: COR PULMONALE CHRONIC
     Dosage: 0.016 ?G/KG, CONTINUING
     Route: 041
     Dates: start: 20131019

REACTIONS (4)
  - Shock [Fatal]
  - Respiratory failure [Unknown]
  - Pulmonary hypertension [Fatal]
  - Right ventricular failure [Fatal]

NARRATIVE: CASE EVENT DATE: 201407
